FAERS Safety Report 9121403 (Version 3)
Quarter: 2013Q1

REPORT INFORMATION
  Report Type: Report from Study
  Country: RO (occurrence: RO)
  Receive Date: 20130227
  Receipt Date: 20130325
  Transmission Date: 20140127
  Serious: Yes (Hospitalization)
  Sender: FDA-Public Use
  Company Number: RO-MERCK-1302ROM011709

PATIENT
  Age: 17 Year
  Sex: Female
  Weight: 82 kg

DRUGS (14)
  1. ASENAPINE MALEATE-SCHIZOPHRENIA [Suspect]
     Indication: SCHIZOPHRENIA
     Dosage: 5 MG, BID
     Route: 060
     Dates: start: 20120830, end: 20120903
  2. ASENAPINE MALEATE-SCHIZOPHRENIA [Suspect]
     Dosage: 50 MG, BID
     Route: 060
     Dates: end: 20130131
  3. HALOPERIDOL [Concomitant]
     Indication: SCHIZOPHRENIA
     Dosage: 0.5 ML, TID
     Route: 048
     Dates: start: 20130123
  4. HALOPERIDOL [Concomitant]
     Indication: AGITATION
  5. NEUROTOP RETARD [Concomitant]
     Indication: SCHIZOPHRENIA
     Dosage: 300 MG, BID
     Route: 048
     Dates: start: 20130123
  6. NEUROTOP RETARD [Concomitant]
     Indication: AGITATION
  7. DIAZEPAM [Concomitant]
     Indication: SCHIZOPHRENIA
     Dosage: 10 MG, TID
     Route: 048
     Dates: start: 20130123
  8. DIAZEPAM [Concomitant]
     Indication: AGITATION
  9. LEVOMEPROMAZINE [Concomitant]
     Indication: SCHIZOPHRENIA
     Dosage: 25 MG, TID
     Route: 048
     Dates: start: 20130215
  10. RISPOLEPT [Concomitant]
     Indication: SCHIZOPHRENIA
     Dosage: 2 MG, BID
     Route: 048
     Dates: start: 20130215
  11. LAN [Concomitant]
     Dosage: UNK
     Dates: start: 20130304
  12. ROMPARKIN [Concomitant]
     Indication: PROPHYLAXIS
     Dosage: 2 MG, TID
     Route: 048
     Dates: start: 20130123
  13. PROPRANOLOL HYDROCHLORIDE [Concomitant]
     Indication: TACHYCARDIA
     Dosage: 10 MG, TID
     Route: 048
     Dates: start: 20130123
  14. CEFTRIAXONE SODIUM [Concomitant]
     Indication: INFLUENZA
     Dosage: 1 G, BID
     Dates: start: 20130215, end: 20130219

REACTIONS (1)
  - Agitation [Recovering/Resolving]
